FAERS Safety Report 13124732 (Version 1)
Quarter: 2017Q1

REPORT INFORMATION
  Report Type: Spontaneous
  Country: CA (occurrence: CA)
  Receive Date: 20170118
  Receipt Date: 20170118
  Transmission Date: 20170428
  Serious: Yes (Other)
  Sender: FDA-Public Use
  Company Number: CA-CONCORDIA PHARMACEUTICALS INC.-GSH201701-000470

PATIENT
  Age: 23 Year
  Sex: Female

DRUGS (10)
  1. PLAQUENIL [Suspect]
     Active Substance: HYDROXYCHLOROQUINE SULFATE
     Route: 048
     Dates: start: 201501, end: 2016
  2. CIMZIA [Suspect]
     Active Substance: CERTOLIZUMAB PEGOL
     Route: 065
  3. METHOTREXATE SODIUM. [Suspect]
     Active Substance: METHOTREXATE SODIUM
     Indication: RHEUMATOID ARTHRITIS
     Route: 048
     Dates: start: 201405
  4. XELJANZ [Concomitant]
     Active Substance: TOFACITINIB CITRATE
     Dates: start: 20160907
  5. ARAVA [Suspect]
     Active Substance: LEFLUNOMIDE
     Route: 048
     Dates: end: 201605
  6. ENBREL [Suspect]
     Active Substance: ETANERCEPT
     Indication: RHEUMATOID ARTHRITIS
     Route: 058
  7. ORENCIA [Concomitant]
     Active Substance: ABATACEPT
     Dates: start: 20160621
  8. ARAVA [Suspect]
     Active Substance: LEFLUNOMIDE
     Route: 048
     Dates: start: 201007, end: 2012
  9. HUMIRA [Suspect]
     Active Substance: ADALIMUMAB
     Route: 065
  10. ACTEMRA [Suspect]
     Active Substance: TOCILIZUMAB
     Route: 065

REACTIONS (2)
  - Rheumatoid arthritis [Unknown]
  - Drug ineffective [Unknown]
